FAERS Safety Report 7876730-6 (Version None)
Quarter: 2011Q4

REPORT INFORMATION
  Report Type: 
  Country: None (occurrence: None)
  Receive Date: 20111031
  Receipt Date: 20111019
  Transmission Date: 20120403
  Serious: Yes (Hospitalization)
  Sender: FDA-Public Use
  Company Number: JP-ROCHE-1007015

PATIENT
  Age: 61 Year
  Sex: Female

DRUGS (2)
  1. COPEGUS [Suspect]
     Indication: HEPATITIS C
     Route: 048
  2. INTERFERON BETA NOS [Suspect]
     Indication: HEPATITIS C
     Route: 042

REACTIONS (2)
  - POST PROCEDURAL INFECTION [None]
  - MULTI-ORGAN FAILURE [None]
